FAERS Safety Report 14587344 (Version 3)
Quarter: 2018Q1

REPORT INFORMATION
  Report Type: Spontaneous
  Country: US (occurrence: US)
  Receive Date: 20180301
  Receipt Date: 20180322
  Transmission Date: 20180509
  Serious: No
  Sender: FDA-Public Use
  Company Number: US-CELGENEUS-USA-20180209766

PATIENT
  Age: 80 Year
  Sex: Female
  Weight: 51 kg

DRUGS (21)
  1. SYNTHROID [Concomitant]
     Active Substance: LEVOTHYROXINE SODIUM
     Indication: HYPOTHYROIDISM
  2. MILK THISTLE [Concomitant]
     Active Substance: DIETARY SUPPLEMENT\HERBALS\MILK THISTLE
     Indication: HYPERTENSION
     Route: 065
  3. OTEZLA [Suspect]
     Active Substance: APREMILAST
     Indication: PSORIATIC ARTHROPATHY
     Dosage: 60 MILLIGRAM
     Route: 048
     Dates: end: 20180312
  4. VITAMIN C [Concomitant]
     Active Substance: ASCORBIC ACID
     Indication: IMMUNE SYSTEM DISORDER
     Route: 065
  5. GRAPE SEED [Concomitant]
     Active Substance: HERBALS\VITIS VINIFERA SEED
     Indication: BLOOD CHOLESTEROL
     Route: 065
  6. GARLIC. [Concomitant]
     Active Substance: GARLIC
     Indication: BLOOD CHOLESTEROL
     Route: 048
  7. CHOLSTOFF [Concomitant]
     Indication: IMMUNE SYSTEM DISORDER
     Route: 065
  8. SYNTHROID [Concomitant]
     Active Substance: LEVOTHYROXINE SODIUM
     Indication: HYPERTENSION
     Dosage: 75 MICROGRAM
     Route: 065
  9. GINGER ROOT [Concomitant]
     Active Substance: GINGER
     Indication: HYPERTENSION
     Route: 065
  10. COQ 10 [Concomitant]
     Active Substance: UBIDECARENONE
     Indication: HYPERTENSION
     Route: 065
  11. NORVASC [Concomitant]
     Active Substance: AMLODIPINE BESYLATE
     Indication: HYPERTENSION
     Dosage: 25 MILLIGRAM
     Route: 065
  12. ZANTAC [Concomitant]
     Active Substance: RANITIDINE HYDROCHLORIDE
     Indication: GASTRITIS
     Dosage: 300 MILLIGRAM
     Route: 065
  13. SYNTHROID [Concomitant]
     Active Substance: LEVOTHYROXINE SODIUM
     Indication: THYROIDECTOMY
     Dosage: 88 MICROGRAM
     Route: 065
  14. FOLIC ACID. [Concomitant]
     Active Substance: FOLIC ACID
     Indication: HYPERTENSION
     Route: 065
  15. VITAMIN D3 [Concomitant]
     Active Substance: CHOLECALCIFEROL
     Indication: HYPERTENSION
     Route: 065
  16. VITAMIN B12 [Concomitant]
     Active Substance: CYANOCOBALAMIN
     Indication: IMMUNE SYSTEM DISORDER
     Route: 065
  17. OTEZLA [Suspect]
     Active Substance: APREMILAST
     Indication: PSORIASIS
     Dosage: 20 MILLIGRAM
     Route: 048
     Dates: start: 20180227
  18. TEA [Concomitant]
     Active Substance: TEA LEAF
     Indication: IMMUNE SYSTEM DISORDER
     Route: 065
  19. BEET ROOT [Concomitant]
     Indication: HYPERTENSION
     Route: 065
  20. OMEGA -3 [Concomitant]
     Indication: BLOOD CHOLESTEROL ABNORMAL
     Route: 065
  21. ECHINACEA [Concomitant]
     Active Substance: ECHINACEA, UNSPECIFIED
     Indication: IMMUNE SYSTEM DISORDER
     Route: 065

REACTIONS (3)
  - Abdominal discomfort [Not Recovered/Not Resolved]
  - Chills [Recovered/Resolved]
  - Diarrhoea [Not Recovered/Not Resolved]

NARRATIVE: CASE EVENT DATE: 20180311
